FAERS Safety Report 16719715 (Version 4)
Quarter: 2020Q2

REPORT INFORMATION
  Report Type: Spontaneous
  Country: US (occurrence: US)
  Receive Date: 20190820
  Receipt Date: 20200617
  Transmission Date: 20200713
  Serious: Yes (Death, Hospitalization)
  Sender: FDA-Public Use
  Company Number: US-PFIZER INC-2019192988

PATIENT
  Age: 57 Year
  Sex: Male
  Weight: 127 kg

DRUGS (4)
  1. METFORMIN [Concomitant]
     Active Substance: METFORMIN HYDROCHLORIDE
     Indication: DIABETES MELLITUS
     Dosage: UNK
     Dates: start: 2018
  2. TIKOSYN [Suspect]
     Active Substance: DOFETILIDE
     Dosage: 20 MG, 1X/DAY
     Dates: start: 201908, end: 201912
  3. TIKOSYN [Suspect]
     Active Substance: DOFETILIDE
     Indication: ATRIAL FIBRILLATION
     Dosage: 250 MG, 2X/DAY (Q12H)
     Route: 048
  4. TIKOSYN [Suspect]
     Active Substance: DOFETILIDE
     Indication: CARDIAC DISORDER
     Dosage: 125 UG, (TWO TIKOSYN OF 0.125 MG INSTEAD OF ONE)
     Dates: start: 201904

REACTIONS (4)
  - Drug ineffective [Unknown]
  - Product prescribing error [Unknown]
  - Cardiac failure [Fatal]
  - Renal failure [Fatal]
